FAERS Safety Report 24701148 (Version 1)
Quarter: 2024Q4

REPORT INFORMATION
  Report Type: Spontaneous
  Country: US (occurrence: None)
  Receive Date: 20241205
  Receipt Date: 20241205
  Transmission Date: 20250115
  Serious: Yes (Hospitalization)
  Sender: Public
  Company Number: None

PATIENT
  Age: 81 Year
  Sex: Male
  Weight: 77.6 kg

DRUGS (3)
  1. FLUOROURACIL [Suspect]
     Active Substance: FLUOROURACIL
     Dates: end: 20241127
  2. LEUCOVORIN CALCIUM [Suspect]
     Active Substance: LEUCOVORIN CALCIUM
     Dates: end: 20240610
  3. ELOXATIN [Suspect]
     Active Substance: OXALIPLATIN
     Dates: end: 20241113

REACTIONS (10)
  - Pneumonia [None]
  - Neutropenia [None]
  - Failure to thrive [None]
  - Anaemia [None]
  - Nausea [None]
  - Hypoxia [None]
  - Cholelithiasis [None]
  - Arteriosclerosis coronary artery [None]
  - Constipation [None]
  - Cardiomegaly [None]

NARRATIVE: CASE EVENT DATE: 20241127
